FAERS Safety Report 7027312-X (Version None)
Quarter: 2010Q3

REPORT INFORMATION
  Report Type: 
  Country: None (occurrence: None)
  Receive Date: 20100930
  Receipt Date: 20100923
  Transmission Date: 20110219
  Serious: Yes (Disabling, Congenital Anomaly)
  Sender: FDA-Public Use
  Company Number: 2004-02-1356

PATIENT
  Age: 1 Day
  Sex: Male

DRUGS (2)
  1. DESLORATADINE [Suspect]
     Indication: PRODUCT USED FOR UNKNOWN INDICATION
     Dosage: 5 MG;QD;PO
     Route: 048
     Dates: start: 20020322, end: 20020327
  2. ELAVIL [Suspect]
     Indication: PRODUCT USED FOR UNKNOWN INDICATION
     Dosage: 10 MG;QD;PO
     Route: 048

REACTIONS (3)
  - CRYPTORCHISM [None]
  - HERNIA CONGENITAL [None]
  - MATERNAL DRUGS AFFECTING FOETUS [None]
